FAERS Safety Report 7995446-9 (Version None)
Quarter: 2011Q4

REPORT INFORMATION
  Report Type: 
  Country: None (occurrence: None)
  Receive Date: 20111220
  Receipt Date: 20111209
  Transmission Date: 20120403
  Serious: Yes (Other)
  Sender: FDA-Public Use
  Company Number: US-BAYER-201023672NA

PATIENT
  Age: 28 Year
  Sex: Female
  Weight: 99.773 kg

DRUGS (1)
  1. YAZ [Suspect]
     Indication: CONTRACEPTION
     Dosage: UNK
     Route: 048
     Dates: start: 20070627, end: 20080428

REACTIONS (6)
  - OEDEMA PERIPHERAL [None]
  - MUSCLE SPASMS [None]
  - MENTAL DISORDER [None]
  - PAIN IN EXTREMITY [None]
  - EMBOLISM [None]
  - DEEP VEIN THROMBOSIS [None]
